FAERS Safety Report 5522611-2 (Version None)
Quarter: 2007Q4

REPORT INFORMATION
  Report Type: 
  Country: None (occurrence: None)
  Receive Date: 20071120
  Receipt Date: 20071108
  Transmission Date: 20080405
  Serious: Yes (Other)
  Sender: FDA-Public Use
  Company Number: CA-SHR-CA-2007-013528

PATIENT
  Age: 55 Year
  Sex: Female
  Weight: 68 kg

DRUGS (6)
  1. BETASERON [Suspect]
     Indication: RELAPSING-REMITTING MULTIPLE SCLEROSIS
     Dosage: 8 MIU, EVERY 2D
     Route: 058
     Dates: start: 19990106, end: 20071004
  2. SYNTHROID [Concomitant]
     Indication: HYPOTHYROIDISM
     Dosage: .1 MG, UNK
     Route: 048
     Dates: start: 20070308, end: 20070101
  3. SYNTHROID [Concomitant]
     Dosage: .088 MG, UNK
     Route: 048
     Dates: start: 20070101
  4. OXAZEPAM [Concomitant]
     Dosage: 30 MG, UNK
     Route: 048
  5. CELEXA [Concomitant]
     Indication: DEPRESSION
     Dosage: 20 MG, UNK
     Route: 048
  6. XANAX [Concomitant]
     Indication: ANXIETY
     Dosage: UNK, UNK
     Route: 048

REACTIONS (8)
  - CONTUSION [None]
  - HYPOTHYROIDISM [None]
  - INJECTION SITE ERYTHEMA [None]
  - INJECTION SITE INDURATION [None]
  - INJECTION SITE MASS [None]
  - INJECTION SITE PAIN [None]
  - INJECTION SITE REACTION [None]
  - THYROID NEOPLASM [None]
